FAERS Safety Report 12039616 (Version 1)
Quarter: 2016Q1

REPORT INFORMATION
  Report Type: Spontaneous
  Country: US (occurrence: None)
  Receive Date: 20160205
  Receipt Date: 20160205
  Transmission Date: 20160526
  Serious: No
  Sender: FDA-Public Use
  Company Number: None

PATIENT
  Age: 46 Year
  Sex: Female
  Weight: 77.5 kg

DRUGS (11)
  1. CIPROFLOXICIN 500MG [Suspect]
     Active Substance: CIPROFLOXACIN HYDROCHLORIDE
     Indication: URINARY TRACT INFECTION
     Route: 048
  2. HALOPERIDOL DECANOATE. [Concomitant]
     Active Substance: HALOPERIDOL DECANOATE
  3. GLYBURIDE. [Concomitant]
     Active Substance: GLYBURIDE
  4. NICOTINE GUM [Concomitant]
     Active Substance: NICOTINE
  5. THIAMINE. [Concomitant]
     Active Substance: THIAMINE
  6. BIOTIN [Concomitant]
     Active Substance: BIOTIN
  7. BENZTROPINE [Concomitant]
     Active Substance: BENZTROPINE
  8. DIVALPROEX NA [Concomitant]
  9. CLOZAPINE. [Concomitant]
     Active Substance: CLOZAPINE
  10. MULTI VITAMINS WITH MINERALS [Concomitant]
  11. CALCIUM CARB WITH D [Concomitant]

REACTIONS (1)
  - Rash [None]

NARRATIVE: CASE EVENT DATE: 20151021
